FAERS Safety Report 22157192 (Version 1)
Quarter: 2023Q1

REPORT INFORMATION
  Report Type: Report from Study
  Country: US (occurrence: None)
  Receive Date: 20230330
  Receipt Date: 20230330
  Transmission Date: 20230418
  Serious: Yes (Other)
  Sender: FDA-Public Use
  Company Number: US-Merck Healthcare KGaA-9391617

PATIENT
  Sex: Female

DRUGS (1)
  1. MAVENCLAD [Suspect]
     Active Substance: CLADRIBINE
     Indication: Multiple sclerosis
     Dosage: YEAR ONE THERAPY
     Route: 048
     Dates: start: 20230202, end: 20230306

REACTIONS (12)
  - Haematochezia [Unknown]
  - Epistaxis [Recovered/Resolved]
  - Presyncope [Unknown]
  - Dizziness [Unknown]
  - Feeling abnormal [Unknown]
  - Dyspnoea [Unknown]
  - Contusion [Unknown]
  - Red blood cell count decreased [Unknown]
  - Platelet count decreased [Unknown]
  - White blood cell count decreased [Unknown]
  - Eye pain [Unknown]
  - Blepharospasm [Unknown]
